FAERS Safety Report 12577163 (Version 1)
Quarter: 2016Q3

REPORT INFORMATION
  Report Type: Spontaneous
  Country: US (occurrence: US)
  Receive Date: 20160720
  Receipt Date: 20160720
  Transmission Date: 20161109
  Serious: No
  Sender: FDA-Public Use
  Company Number: US-PERRIGO-15US006962

PATIENT
  Sex: Female

DRUGS (3)
  1. MICONAZOLE 1 [Suspect]
     Active Substance: MICONAZOLE NITRATE
     Indication: VULVOVAGINAL PRURITUS
  2. MICONAZOLE 1 [Suspect]
     Active Substance: MICONAZOLE NITRATE
     Indication: VULVOVAGINAL BURNING SENSATION
  3. MICONAZOLE 1 [Suspect]
     Active Substance: MICONAZOLE NITRATE
     Indication: ACCIDENTAL EXPOSURE TO PRODUCT
     Dosage: 1 APPLICATORFUL, SINGLE
     Route: 067
     Dates: start: 201506, end: 201506

REACTIONS (2)
  - Drug ineffective [Unknown]
  - Wrong drug administered [Recovered/Resolved]

NARRATIVE: CASE EVENT DATE: 201506
